FAERS Safety Report 7781807-X (Version None)
Quarter: 2011Q3

REPORT INFORMATION
  Report Type: 
  Country: None (occurrence: None)
  Receive Date: 20110927
  Receipt Date: 20110923
  Transmission Date: 20111222
  Serious: Yes (Hospitalization)
  Sender: FDA-Public Use
  Company Number: FR-GLAXOSMITHKLINE-B0749845A

PATIENT
  Sex: Male

DRUGS (11)
  1. AMANTADINE HCL [Concomitant]
     Dosage: 2UNIT PER DAY
     Route: 065
  2. PROSCAR [Concomitant]
     Dosage: 1UNIT IN THE MORNING
     Route: 065
  3. ACETAMINOPHEN [Concomitant]
     Dosage: 1G AS REQUIRED
     Route: 065
  4. PAROXETINE [Concomitant]
     Dosage: 1.5UNIT IN THE MORNING
     Route: 065
  5. VALPROIC ACID [Concomitant]
     Dosage: 300MG TWICE PER DAY
     Route: 065
  6. LYRICA [Concomitant]
     Dosage: 75MG TWICE PER DAY
     Route: 065
  7. CLONAZEPAM [Concomitant]
     Dosage: 5DROP AT NIGHT
     Route: 065
  8. STALEVO 100 [Concomitant]
     Dosage: 5UNIT PER DAY
     Route: 065
  9. FORLAX [Concomitant]
     Dosage: 2UNIT TWICE PER DAY
     Route: 065
  10. CLOZAPINE [Concomitant]
     Dosage: .25UNIT PER DAY
     Route: 065
  11. REQUIP [Suspect]
     Indication: PARKINSON'S DISEASE
     Dosage: 8MG TWICE PER DAY
     Route: 048

REACTIONS (2)
  - INAPPROPRIATE SCHEDULE OF DRUG ADMINISTRATION [None]
  - HALLUCINATIONS, MIXED [None]
